FAERS Safety Report 8120377-3 (Version None)
Quarter: 2012Q1

REPORT INFORMATION
  Report Type: 
  Country: None (occurrence: None)
  Receive Date: 20120207
  Receipt Date: 20120202
  Transmission Date: 20120608
  Serious: Yes (Hospitalization)
  Sender: FDA-Public Use
  Company Number: JP-GLAXOSMITHKLINE-B0777825A

PATIENT
  Sex: Male
  Weight: 61 kg

DRUGS (6)
  1. DILTIAZEM HYDROCHLORIDE [Concomitant]
     Dosage: 200MG PER DAY
     Route: 065
  2. OMEPRAZOLE [Concomitant]
     Dosage: 20MG PER DAY
     Route: 048
  3. DUTASTERIDE [Suspect]
     Indication: BENIGN PROSTATIC HYPERPLASIA
     Dosage: .5MG PER DAY
     Route: 048
     Dates: start: 20110727, end: 20111202
  4. PLAVIX [Concomitant]
     Dosage: 75MG PER DAY
     Route: 048
  5. LIVALO [Concomitant]
     Dosage: 2MG PER DAY
     Route: 048
  6. TAMSULOSIN HYDROCHLORIDE [Concomitant]
     Route: 048

REACTIONS (4)
  - PRURITUS [None]
  - HYPERSENSITIVITY [None]
  - HEPATIC FUNCTION ABNORMAL [None]
  - PYREXIA [None]
